FAERS Safety Report 7659668-9 (Version None)
Quarter: 2011Q3

REPORT INFORMATION
  Report Type: 
  Country: None (occurrence: None)
  Receive Date: 20110805
  Receipt Date: 20110728
  Transmission Date: 20111222
  Serious: Yes (Hospitalization)
  Sender: FDA-Public Use
  Company Number: BE-ABBOTT-11P-013-0734646-01

PATIENT
  Sex: Female

DRUGS (9)
  1. MEDROL [Concomitant]
     Indication: CROHN'S DISEASE
     Dates: start: 20110508, end: 20110513
  2. MEDROL [Concomitant]
     Dates: start: 20110528
  3. MEDROL [Concomitant]
     Dates: start: 20110514, end: 20110520
  4. HUMIRA [Suspect]
     Dosage: WEEK 2
     Route: 058
  5. HUMIRA [Suspect]
     Route: 058
     Dates: end: 20100315
  6. AZATHIOPRINE [Concomitant]
     Indication: CROHN'S DISEASE
     Dosage: THERAPY DURATION: 8 YEARS, 7 MONTHS
  7. LEVOFLOXACIN [Concomitant]
     Indication: CROHN'S DISEASE
     Dates: start: 20110501
  8. HUMIRA [Suspect]
     Indication: CROHN'S DISEASE
     Dosage: BASELINE
     Route: 058
     Dates: start: 20090925, end: 20090925
  9. MEDROL [Concomitant]
     Dates: start: 20110521, end: 20110527

REACTIONS (3)
  - SUBDURAL HAEMATOMA [None]
  - PANCYTOPENIA [None]
  - BONE MARROW TUMOUR CELL INFILTRATION [None]
